FAERS Safety Report 9015668 (Version 1)
Quarter: 2013Q1

REPORT INFORMATION
  Report Type: Spontaneous
  Country: KR (occurrence: None)
  Receive Date: 20130103
  Receipt Date: 20130103
  Transmission Date: 20140127
  Serious: Yes (Other)
  Sender: FDA-Public Use
  Company Number: DSA_61682_2013

PATIENT
  Sex: 0

DRUGS (3)
  1. FLUOROURACIL (FLUOROURACIL) [Suspect]
     Indication: GASTRIC CANCER
     Dosage: 400 MG/M2 ON DAY 1, 1500 MG/M2 AS A 22 HOUR CONTINUOUS INFUSION ON DAYS 1 AND 2
     Route: 040
  2. OXALIPLATIN (OXALIPLATIN) [Suspect]
     Indication: GASTRIC CANCER
     Dosage: AS 2 HOUR INFUSION ON DAY 1, EVERY 2 WEEKS INTRAVENOUS (NOT OTHERWISE SPECIFIED)
     Route: 042
  3. LEUCOVORIN [Suspect]
     Indication: GASTRIC CANCER
     Dosage: AS A CONTINUOUS INFUSION ON DAYS 1 AND 2, EVERY 2 WEEKS INTRAVENOUS (NOT OTHERWISE SPECIFIED0
     Route: 042

REACTIONS (1)
  - Neurotoxicity [None]
